FAERS Safety Report 5191984-5 (Version None)
Quarter: 2006Q4

REPORT INFORMATION
  Report Type: 
  Country: None (occurrence: None)
  Receive Date: 20061227
  Receipt Date: 20061218
  Transmission Date: 20070319
  Serious: Yes (Hospitalization)
  Sender: FDA-Public Use
  Company Number: US-AMGEN-US197653

PATIENT
  Sex: Female
  Weight: 67.6 kg

DRUGS (3)
  1. VECTIBIX [Suspect]
     Indication: COLORECTAL CANCER
     Route: 042
     Dates: start: 20061019, end: 20061019
  2. OXYCODONE HCL [Concomitant]
     Dates: start: 20061011
  3. DURAGESIC-100 [Concomitant]
     Route: 065
     Dates: start: 20061011

REACTIONS (7)
  - BLOOD PRESSURE INCREASED [None]
  - CHEST DISCOMFORT [None]
  - DEHYDRATION [None]
  - DIZZINESS [None]
  - FATIGUE [None]
  - HYPOAESTHESIA [None]
  - INFUSION RELATED REACTION [None]
